FAERS Safety Report 7287153-5 (Version None)
Quarter: 2010Q4

REPORT INFORMATION
  Report Type: 
  Country: None (occurrence: None)
  Receive Date: 20101222
  Receipt Date: 20100902
  Transmission Date: 20110411
  Serious: Yes (Hospitalization)
  Sender: FDA-Public Use
  Company Number: US-000087

PATIENT
  Age: 21 Year
  Sex: Male

DRUGS (1)
  1. ZENPEP [Suspect]

REACTIONS (1)
  - INTESTINAL OBSTRUCTION [None]
